FAERS Safety Report 23246908 (Version 2)
Quarter: 2023Q4

REPORT INFORMATION
  Report Type: Spontaneous
  Country: US (occurrence: US)
  Receive Date: 20231130
  Receipt Date: 20231130
  Transmission Date: 20240109
  Serious: No
  Sender: FDA-Public Use
  Company Number: US-NOVOPROD-1110011

PATIENT
  Sex: Female

DRUGS (2)
  1. TRESIBA [Suspect]
     Active Substance: INSULIN DEGLUDEC
     Indication: Product used for unknown indication
     Dosage: UNK
     Route: 058
  2. TRESIBA [Suspect]
     Active Substance: INSULIN DEGLUDEC
     Indication: Product used for unknown indication
     Dosage: UNK
     Route: 058

REACTIONS (5)
  - Cyst [Not Recovered/Not Resolved]
  - Injection site pustule [Not Recovered/Not Resolved]
  - Injection site swelling [Not Recovered/Not Resolved]
  - Incorrect dose administered by device [Not Recovered/Not Resolved]
  - Device breakage [Not Recovered/Not Resolved]
